FAERS Safety Report 7435247-3 (Version None)
Quarter: 2011Q2

REPORT INFORMATION
  Report Type: 
  Country: None (occurrence: None)
  Receive Date: 20110415
  Receipt Date: 20110304
  Transmission Date: 20111010
  Serious: Yes (Other)
  Sender: FDA-Public Use
  Company Number: 2011SP010317

PATIENT
  Age: 46 Year
  Sex: Male
  Weight: 72 kg

DRUGS (5)
  1. REBETOL [Suspect]
     Indication: HEPATITIS C
     Dosage: 800 MG;QD;PO ; PO
     Route: 048
     Dates: start: 20110307
  2. REBETOL [Suspect]
     Indication: HEPATITIS C
     Dosage: 800 MG;QD;PO ; PO
     Route: 048
     Dates: start: 20101207, end: 20110228
  3. PEG-INTRON [Suspect]
     Indication: HEPATITIS C
     Dosage: 100  MCG;QW;SC ; 50 MCG;QW;SC
     Route: 058
     Dates: start: 20101207, end: 20110228
  4. PEG-INTRON [Suspect]
     Indication: HEPATITIS C
     Dosage: 100  MCG;QW;SC ; 50 MCG;QW;SC
     Route: 058
     Dates: start: 20110307
  5. BETAMETHASONE [Suspect]
     Indication: INJECTION SITE ECZEMA
     Dosage: TOP
     Route: 061
     Dates: start: 20110207

REACTIONS (2)
  - SYNCOPE [None]
  - INJECTION SITE ECZEMA [None]
